FAERS Safety Report 5134723-6 (Version None)
Quarter: 2006Q4

REPORT INFORMATION
  Report Type: 
  Country: None (occurrence: None)
  Receive Date: 20061019
  Receipt Date: 20061005
  Transmission Date: 20070319
  Serious: Yes (Hospitalization)
  Sender: FDA-Public Use
  Company Number: 2006VX001947

PATIENT
  Age: 56 Year
  Sex: Female

DRUGS (10)
  1. INTERFERON ALFACON-1 [Suspect]
     Indication: HEPATITIS C
     Dosage: 15 UG;QD;SC
     Route: 058
     Dates: start: 20060417, end: 20060514
  2. INTERFERON ALFACON-1 [Suspect]
     Indication: HEPATITIS C
     Dosage: 15 UG;QD;SC
     Route: 058
     Dates: start: 20060605, end: 20060920
  3. AUGMENTIN '125' [Concomitant]
  4. BICITRA [Concomitant]
  5. DILTIAZEM HCL [Concomitant]
  6. NEXIUM [Concomitant]
  7. CIPROFLOXACIN [Concomitant]
  8. HYDRALAZINE HCL [Concomitant]
  9. ULTRAM [Concomitant]
  10. RIBAVIRIN [Concomitant]

REACTIONS (9)
  - CEREBROVASCULAR ACCIDENT [None]
  - DYSURIA [None]
  - FATIGUE [None]
  - HAEMOGLOBIN DECREASED [None]
  - HEADACHE [None]
  - INJECTION SITE ABSCESS [None]
  - KIDNEY INFECTION [None]
  - NAUSEA [None]
  - PYREXIA [None]
